FAERS Safety Report 5197702-9 (Version None)
Quarter: 2007Q1

REPORT INFORMATION
  Report Type: 
  Country: None (occurrence: None)
  Receive Date: 20070103
  Receipt Date: 20061221
  Transmission Date: 20070707
  Serious: Yes (Hospitalization)
  Sender: FDA-Public Use
  Company Number: US-JNJFOC-20061003979

PATIENT
  Sex: Female
  Weight: 72.58 kg

DRUGS (3)
  1. ULTRAM SR [Suspect]
     Indication: MUSCULOSKELETAL PAIN
     Route: 048
  2. LASIX [Concomitant]
     Indication: DIURETIC EFFECT
     Route: 048
  3. DILTIAZEM HCL [Concomitant]
     Indication: CARDIAC DISORDER
     Route: 048

REACTIONS (4)
  - HYPERSENSITIVITY [None]
  - PNEUMONIA [None]
  - TREMOR [None]
  - VOMITING [None]
